FAERS Safety Report 7664672-0 (Version None)
Quarter: 2011Q3

REPORT INFORMATION
  Report Type: 
  Country: None (occurrence: None)
  Receive Date: 20110806
  Receipt Date: 20110110
  Transmission Date: 20111222
  Serious: No
  Sender: FDA-Public Use
  Company Number: US-ABBOTT-11P-163-0696460-00

PATIENT
  Sex: Male
  Weight: 72.64 kg

DRUGS (1)
  1. NIASPAN [Suspect]
     Indication: PRODUCT USED FOR UNKNOWN INDICATION
     Dates: start: 20101201

REACTIONS (7)
  - FALL [None]
  - LOSS OF CONSCIOUSNESS [None]
  - BACK PAIN [None]
  - FEELING HOT [None]
  - NAUSEA [None]
  - DIZZINESS [None]
  - NECK PAIN [None]
